FAERS Safety Report 7518531-4 (Version None)
Quarter: 2011Q2

REPORT INFORMATION
  Report Type: 
  Country: None (occurrence: None)
  Receive Date: 20110602
  Receipt Date: 20110519
  Transmission Date: 20111010
  Serious: Yes (Other)
  Sender: FDA-Public Use
  Company Number: CA-MYLANLABS-2011S1010656

PATIENT
  Age: 48 Year
  Sex: Male

DRUGS (2)
  1. ZOPICLONE [Concomitant]
     Route: 065
  2. FINASTERIDE [Suspect]
     Indication: ANDROGENETIC ALOPECIA
     Route: 065

REACTIONS (1)
  - INFERTILITY MALE [None]
